FAERS Safety Report 13197288 (Version 1)
Quarter: 2017Q1

REPORT INFORMATION
  Report Type: Spontaneous
  Country: US (occurrence: US)
  Receive Date: 20170207
  Receipt Date: 20170207
  Transmission Date: 20170428
  Serious: Yes (Hospitalization)
  Sender: FDA-Public Use
  Company Number: None

PATIENT
  Sex: Female

DRUGS (1)
  1. CAPECITABINE 500 MG ACCORD [Suspect]
     Active Substance: CAPECITABINE
     Dosage: 1500 MG BID FOR 7 DAYS ON AND 7 DAYS OFF PO
     Route: 048
     Dates: start: 20170113

REACTIONS (2)
  - Peripheral swelling [None]
  - Limb mass [None]
